FAERS Safety Report 23899843 (Version 1)
Quarter: 2024Q2

REPORT INFORMATION
  Report Type: Spontaneous
  Country: US (occurrence: None)
  Receive Date: 20240526
  Receipt Date: 20240526
  Transmission Date: 20240716
  Serious: No
  Sender: FDA-Public Use
  Company Number: US-ROCHE-3367718

PATIENT
  Age: 41 Year
  Sex: Female
  Weight: 61.2 kg

DRUGS (1)
  1. OCREVUS [Suspect]
     Active Substance: OCRELIZUMAB
     Indication: Multiple sclerosis
     Dosage: 300 MG INTRAVENOUSLY ON DAY1, THEN 300MG ON DAY 15 AS AN INDUCTION DOSE.
     Route: 042
     Dates: start: 20230612

REACTIONS (1)
  - Ear pruritus [Recovered/Resolved]

NARRATIVE: CASE EVENT DATE: 20230612
